FAERS Safety Report 8026182-0 (Version None)
Quarter: 2012Q1

REPORT INFORMATION
  Report Type: 
  Country: None (occurrence: None)
  Receive Date: 20120105
  Receipt Date: 20110207
  Transmission Date: 20120608
  Serious: No
  Sender: FDA-Public Use
  Company Number: US-ABBOTT-11P-163-0704509-00

PATIENT
  Sex: Female
  Weight: 67.192 kg

DRUGS (5)
  1. VALTURNA [Concomitant]
     Indication: PRODUCT USED FOR UNKNOWN INDICATION
  2. BYSTOLIC [Concomitant]
     Indication: PRODUCT USED FOR UNKNOWN INDICATION
  3. SYNTHROID [Suspect]
     Indication: PARATHYROIDECTOMY
     Dates: start: 20101201
  4. SYNTHROID [Suspect]
     Dates: end: 20101201
  5. SYNTHROID [Suspect]
     Dates: start: 20100501

REACTIONS (3)
  - SKIN BURNING SENSATION [None]
  - PAIN OF SKIN [None]
  - THYROID NEOPLASM [None]
